FAERS Safety Report 6967623-7 (Version None)
Quarter: 2010Q3

REPORT INFORMATION
  Report Type: 
  Country: None (occurrence: None)
  Receive Date: 20100901
  Receipt Date: 20100824
  Transmission Date: 20110219
  Serious: Yes (Death)
  Sender: FDA-Public Use
  Company Number: A-CH2010-39288

PATIENT
  Sex: Female

DRUGS (1)
  1. ZAVESCA [Suspect]
     Indication: NIEMANN-PICK DISEASE
     Dosage: ORAL
     Route: 048
     Dates: end: 20100820

REACTIONS (2)
  - CARDIAC ARREST [None]
  - SEPSIS [None]
